FAERS Safety Report 17396621 (Version 1)
Quarter: 2020Q1

REPORT INFORMATION
  Report Type: Spontaneous
  Country: US (occurrence: US)
  Receive Date: 20200207
  Receipt Date: 20200207
  Transmission Date: 20200409
  Serious: No
  Sender: FDA-Public Use
  Company Number: None

PATIENT
  Sex: Female
  Weight: 64.35 kg

DRUGS (4)
  1. GABAPENTIN. [Concomitant]
     Active Substance: GABAPENTIN
  2. ZYKADIA [Suspect]
     Active Substance: CERITINIB
     Indication: AGRANULOCYTOSIS
     Route: 048
     Dates: start: 20190627, end: 20200207
  3. XANAX [Concomitant]
     Active Substance: ALPRAZOLAM
  4. FENTANYL. [Concomitant]
     Active Substance: FENTANYL

REACTIONS (1)
  - Disease progression [None]
